FAERS Safety Report 21018016 (Version 1)
Quarter: 2022Q2

REPORT INFORMATION
  Report Type: Report from Study
  Country: CA (occurrence: CA)
  Receive Date: 20220628
  Receipt Date: 20220628
  Transmission Date: 20220721
  Serious: Yes (Death)
  Sender: FDA-Public Use
  Company Number: CA-Taiho Oncology Inc-EU-2022-01554

PATIENT
  Age: 69 Year
  Sex: Male

DRUGS (1)
  1. LONSURF [Suspect]
     Active Substance: TIPIRACIL HYDROCHLORIDE\TRIFLURIDINE
     Indication: Colorectal cancer metastatic
     Dosage: CYCLE 1, DOSE AND FREQUENCY UNKNOWN
     Route: 048
     Dates: start: 20220613, end: 20220620

REACTIONS (2)
  - Death [Fatal]
  - Ear congestion [Recovering/Resolving]

NARRATIVE: CASE EVENT DATE: 20220601
